FAERS Safety Report 9026110 (Version 1)
Quarter: 2013Q1

REPORT INFORMATION
  Report Type: Spontaneous
  Country: US (occurrence: US)
  Receive Date: 20130122
  Receipt Date: 20130122
  Transmission Date: 20140127
  Serious: No
  Sender: FDA-Public Use
  Company Number: US-MYLANLABS-2012S1016503

PATIENT
  Age: 68 Year
  Sex: Male

DRUGS (6)
  1. BISOPROLOL FUMARATE [Suspect]
     Indication: CARDIAC FAILURE CONGESTIVE
     Route: 048
  2. BISOPROLOL FUMARATE [Suspect]
     Indication: BLOOD PRESSURE INCREASED
     Route: 048
  3. BYSTOLIC [Suspect]
     Route: 048
     Dates: start: 2012, end: 2012
  4. LISINOPRIL [Concomitant]
     Dates: start: 2006
  5. ASA [Concomitant]
     Dates: start: 2010
  6. LEVOTHYROXINE [Concomitant]
     Dates: start: 2006

REACTIONS (4)
  - Gastrointestinal disorder [Not Recovered/Not Resolved]
  - Flatulence [Not Recovered/Not Resolved]
  - Diarrhoea [Not Recovered/Not Resolved]
  - Frequent bowel movements [Not Recovered/Not Resolved]
